FAERS Safety Report 4309141-0 (Version None)
Quarter: 2004Q1

REPORT INFORMATION
  Report Type: 
  Country: None (occurrence: None)
  Receive Date: 20040301
  Receipt Date: 20040218
  Transmission Date: 20041129
  Serious: Yes (Death)
  Sender: FDA-Public Use
  Company Number: 163-20785-03110175

PATIENT
  Age: 75 Year
  Sex: Male
  Weight: 127.0072 kg

DRUGS (11)
  1. THALOMID [Suspect]
     Indication: HAEMORRHAGE
     Dosage: SEE IMAGE
     Route: 048
     Dates: start: 20031106, end: 20031211
  2. THALOMID [Suspect]
     Indication: METASTATIC RENAL CELL CARCINOMA
     Dosage: SEE IMAGE
     Route: 048
     Dates: start: 20031106, end: 20031211
  3. THALOMID [Suspect]
     Indication: HAEMORRHAGE
     Dosage: SEE IMAGE
     Route: 048
     Dates: start: 20031129
  4. THALOMID [Suspect]
     Indication: METASTATIC RENAL CELL CARCINOMA
     Dosage: SEE IMAGE
     Route: 048
     Dates: start: 20031129
  5. CARDIZEM [Concomitant]
  6. LASIX [Concomitant]
  7. MIRTAZAPINE [Concomitant]
  8. POTASSIUM (POTASSIUM) [Concomitant]
  9. VITAMINS (VITAMINS) [Concomitant]
  10. ARTHRITIS SUPPLEMENT [Concomitant]
  11. SLEEPING PILL [Concomitant]

REACTIONS (5)
  - ARTHRALGIA [None]
  - MALIGNANT NEOPLASM PROGRESSION [None]
  - METASTATIC RENAL CELL CARCINOMA [None]
  - PARAESTHESIA [None]
  - VISION BLURRED [None]
